FAERS Safety Report 8355258-3 (Version None)
Quarter: 2012Q2

REPORT INFORMATION
  Report Type: 
  Country: None (occurrence: None)
  Receive Date: 20120511
  Receipt Date: 20120502
  Transmission Date: 20120825
  Serious: Yes (Hospitalization)
  Sender: FDA-Public Use
  Company Number: US-ACTELION-A-US2012-65350

PATIENT

DRUGS (1)
  1. TRACLEER [Suspect]
     Indication: PULMONARY ARTERIAL HYPERTENSION
     Dosage: UNK
     Route: 048
     Dates: start: 20060301

REACTIONS (5)
  - OXYGEN SATURATION DECREASED [None]
  - HEPATOMEGALY [None]
  - CARDIOMEGALY [None]
  - CERVICAL SPINAL STENOSIS [None]
  - SPLENOMEGALY [None]
